FAERS Safety Report 9001025 (Version 1)
Quarter: 2013Q1

REPORT INFORMATION
  Report Type: Spontaneous
  Country: US (occurrence: None)
  Receive Date: 20130103
  Receipt Date: 20130103
  Transmission Date: 20140127
  Serious: Yes (Other)
  Sender: FDA-Public Use
  Company Number: None

PATIENT
  Age: 71 Year
  Sex: Female

DRUGS (2)
  1. INSULIN NPH [Suspect]
     Indication: DIABETES MELLITUS
     Dosage: 16 UNITS / 8 UNITS QAM / QPM
     Route: 058
     Dates: start: 20120508, end: 20120702
  2. INSULIN ASPART [Suspect]
     Indication: DIABETES MELLITUS
     Dosage: CORRECTION SCALE  TIDAC
     Route: 058
     Dates: start: 20120616, end: 20120717

REACTIONS (4)
  - Hyperhidrosis [None]
  - Confusional state [None]
  - Loss of consciousness [None]
  - Blood glucose decreased [None]
